FAERS Safety Report 16473334 (Version 1)
Quarter: 2019Q2

REPORT INFORMATION
  Report Type: Spontaneous
  Country: US (occurrence: US)
  Receive Date: 20190515
  Receipt Date: 20190515
  Transmission Date: 20190711
  Serious: Yes (Life-Threatening)
  Sender: FDA-Public Use
  Company Number: None

PATIENT
  Age: 57 Year
  Sex: Female
  Weight: 117.48 kg

DRUGS (6)
  1. VITAMIN D2 [Concomitant]
     Active Substance: ERGOCALCIFEROL
  2. VITAMIN B12 [Concomitant]
     Active Substance: CYANOCOBALAMIN
  3. CALCIUM CITRATE + D3 [Concomitant]
  4. FLINTSTONES COMPLETE [Concomitant]
     Active Substance: VITAMINS
  5. METHYLDOPA. [Concomitant]
     Active Substance: METHYLDOPA
  6. SPRYCEL [Suspect]
     Active Substance: DASATINIB
     Indication: CHRONIC MYELOID LEUKAEMIA
     Route: 048
     Dates: start: 20190102, end: 20190313

REACTIONS (2)
  - Insurance issue [None]
  - Pericarditis [None]

NARRATIVE: CASE EVENT DATE: 20190301
